FAERS Safety Report 11254825 (Version 1)
Quarter: 2015Q3

REPORT INFORMATION
  Report Type: Spontaneous
  Country: US (occurrence: None)
  Receive Date: 20150708
  Receipt Date: 20150708
  Transmission Date: 20151125
  Serious: Yes (Other)
  Sender: FDA-Public Use
  Company Number: None

PATIENT
  Age: 29 Year
  Sex: Female
  Weight: 47.63 kg

DRUGS (1)
  1. CREST 3D WHITE ARCTIC FRESH [Suspect]
     Active Substance: SODIUM FLUORIDE
     Indication: DENTAL DISORDER PROPHYLAXIS
     Dates: start: 20150626, end: 20150707

REACTIONS (3)
  - Gingival discolouration [None]
  - Gingival disorder [None]
  - Product quality issue [None]

NARRATIVE: CASE EVENT DATE: 20150707
